FAERS Safety Report 5162416-8 (Version None)
Quarter: 2006Q4

REPORT INFORMATION
  Report Type: 
  Country: None (occurrence: None)
  Receive Date: 20061128
  Receipt Date: 20061128
  Transmission Date: 20070319
  Serious: Yes (Other)
  Sender: FDA-Public Use
  Company Number: None

PATIENT
  Age: 83 Year
  Sex: Male
  Weight: 69.4003 kg

DRUGS (12)
  1. TRAVATAN [Suspect]
     Indication: ANGLE CLOSURE GLAUCOMA
     Dosage: 1 DROP OU AM
     Dates: start: 20060524, end: 20060828
  2. MAG OX [Concomitant]
  3. WARFARIN SODIUM [Concomitant]
  4. OMEPRAZOLE [Concomitant]
  5. ZYRTEC [Concomitant]
  6. FUROSEMIDE [Concomitant]
  7. SOTALOL HYDROCHLORIDE [Concomitant]
  8. HYPROMELLOSE [Concomitant]
  9. SIMVASTATIN [Concomitant]
  10. LEVALBUTEROL HCL [Concomitant]
  11. LEVOTHYROXINE SODIUM [Concomitant]
  12. DOXAZOSIN MESYLATE [Concomitant]

REACTIONS (2)
  - ERYTHEMA [None]
  - VISUAL ACUITY REDUCED [None]
